FAERS Safety Report 15013121 (Version 1)
Quarter: 2018Q2

REPORT INFORMATION
  Report Type: Spontaneous
  Country: US (occurrence: US)
  Receive Date: 20180614
  Receipt Date: 20180614
  Transmission Date: 20180711
  Serious: Yes (Other)
  Sender: FDA-Public Use
  Company Number: US-UNITED THERAPEUTICS-UNT-2018-008437

PATIENT
  Sex: Male

DRUGS (1)
  1. TYVASO [Suspect]
     Active Substance: TREPROSTINIL
     Indication: PRODUCT USED FOR UNKNOWN INDICATION
     Dosage: 6 ?G, QID
     Dates: start: 20180524, end: 20180531

REACTIONS (2)
  - Chest pain [Unknown]
  - Electrocardiogram abnormal [Unknown]

NARRATIVE: CASE EVENT DATE: 20180531
